FAERS Safety Report 5210667-6 (Version None)
Quarter: 2007Q1

REPORT INFORMATION
  Report Type: 
  Country: None (occurrence: None)
  Receive Date: 20070117
  Receipt Date: 20070116
  Transmission Date: 20070707
  Serious: Yes (Other)
  Sender: FDA-Public Use
  Company Number: US-GLAXOSMITHKLINE-A0631164A

PATIENT
  Age: 75 Year
  Sex: Male

DRUGS (3)
  1. DYAZIDE [Suspect]
     Indication: MENIERE'S DISEASE
     Dosage: 1CAP PER DAY
     Route: 048
     Dates: start: 19930101
  2. LIPITOR [Concomitant]
  3. TOPROL-XL [Concomitant]

REACTIONS (1)
  - URINARY INCONTINENCE [None]
